FAERS Safety Report 8383934-5 (Version None)
Quarter: 2012Q2

REPORT INFORMATION
  Report Type: 
  Country: None (occurrence: None)
  Receive Date: 20120524
  Receipt Date: 20120515
  Transmission Date: 20120825
  Serious: Yes (Hospitalization)
  Sender: FDA-Public Use
  Company Number: BE-ROCHE-1055345

PATIENT
  Age: 76 Year
  Sex: Male

DRUGS (9)
  1. VEMURAFENIB [Suspect]
     Indication: METASTATIC MALIGNANT MELANOMA
     Dosage: LAST DOSE PRIOR TO SAE: 05/MAR/2012
     Route: 048
     Dates: start: 20110914, end: 20120306
  2. ZOMETA [Concomitant]
     Dates: start: 20110914
  3. IBRUPROFEN [Concomitant]
     Dates: start: 20120301
  4. EXFORGE [Concomitant]
     Dosage: DOSE 5/160 MG
     Dates: start: 20020101
  5. DOCSIMVASTA [Concomitant]
     Dates: start: 19910101
  6. VEMURAFENIB [Suspect]
     Route: 048
     Dates: start: 20120309
  7. ASPIRIN [Concomitant]
     Dates: start: 19910101
  8. PERFUSALGAN [Concomitant]
     Dosage: 1 /PREMEDICATION ZOMETA
     Dates: start: 20110914
  9. PANTOPRAZOLE [Concomitant]
     Dates: start: 20111207

REACTIONS (2)
  - TACHYCARDIA [None]
  - ARRHYTHMIA [None]
